FAERS Safety Report 8854689 (Version 3)
Quarter: 2012Q4

REPORT INFORMATION
  Report Type: 
  Country: JP (occurrence: JP)
  Receive Date: 20121023
  Receipt Date: 20121107
  Transmission Date: 20130627
  Serious: No
  Sender: FDA-Public Use
  Company Number: JP-PFIZER INC-2012262241

PATIENT
  Age: 76 Year
  Sex: Female

DRUGS (9)
  1. CELECOX [Suspect]
     Indication: LOW BACK PAIN
     Dosage: 100 mg, 1x/day
     Route: 048
     Dates: start: 201110
  2. JANUVIA [Concomitant]
     Dosage: 50 mg, UNK
  3. MECOBALAMIN [Concomitant]
     Dosage: UNK
  4. OPALMON [Concomitant]
     Dosage: UNK
  5. TAKEPRON [Concomitant]
     Dosage: UNK
  6. SORENTMIN [Concomitant]
     Dosage: UNK
  7. ALOSENN [Concomitant]
     Dosage: UNK
  8. HAPSTAR-ID [Concomitant]
     Dosage: UNK
  9. LOXONIN [Concomitant]
     Dosage: UNK
     Route: 048

REACTIONS (1)
  - Intentional drug misuse [Unknown]
